FAERS Safety Report 24825923 (Version 2)
Quarter: 2025Q2

REPORT INFORMATION
  Report Type: Report from Study
  Country: CA (occurrence: CA)
  Receive Date: 20250109
  Receipt Date: 20250605
  Transmission Date: 20250716
  Serious: Yes (Hospitalization)
  Sender: OTSUKA
  Company Number: CA-OTSUKA-2025_000391

PATIENT
  Sex: Female

DRUGS (2)
  1. ARIPIPRAZOLE [Suspect]
     Active Substance: ARIPIPRAZOLE
     Indication: Product used for unknown indication
     Dosage: 400 MG, QM
     Route: 030
  2. ARIPIPRAZOLE [Suspect]
     Active Substance: ARIPIPRAZOLE
     Dosage: 200 MG, QM
     Route: 030

REACTIONS (4)
  - Lower limb fracture [Recovered/Resolved]
  - Osteoporosis [Unknown]
  - Fall [Recovered/Resolved]
  - Underdose [Unknown]
